FAERS Safety Report 9850371 (Version 1)
Quarter: 2013Q4

REPORT INFORMATION
  Report Type: Spontaneous
  Country: US (occurrence: None)
  Receive Date: 20131226
  Receipt Date: 20131226
  Transmission Date: 20140711
  Serious: Yes (Hospitalization)
  Sender: FDA-Public Use
  Company Number: PHEH2012US017558

PATIENT
  Age: 55 Year
  Sex: Male

DRUGS (4)
  1. DIOVAN [Suspect]
  2. LOPRESSOR (METOPROLOL TARTRATE) [Concomitant]
  3. PRAVASTATIN (PRAVASTATIN) [Concomitant]
  4. XANAX (ALPRAZOLAM) [Concomitant]

REACTIONS (2)
  - Hypertension [None]
  - Blood pressure increased [None]
